FAERS Safety Report 4802631-3 (Version None)
Quarter: 2005Q4

REPORT INFORMATION
  Report Type: 
  Country: None (occurrence: None)
  Receive Date: 20051014
  Receipt Date: 20050705
  Transmission Date: 20060501
  Serious: Yes (Other)
  Sender: FDA-Public Use
  Company Number: 2005060985

PATIENT
  Age: 34 Year
  Sex: Male

DRUGS (3)
  1. NEURONTIN [Suspect]
     Indication: PAIN
     Dosage: 900 MG (3 IN 1 D)
  2. TRAZODONE HCL [Suspect]
     Indication: ILL-DEFINED DISORDER
     Dosage: 50 MG (ONE TO TWO AT HS)
  3. LEXAPRO [Concomitant]

REACTIONS (4)
  - AGITATION [None]
  - DEPRESSED MOOD [None]
  - INJURY [None]
  - SUICIDE ATTEMPT [None]
